FAERS Safety Report 6771466-7 (Version None)
Quarter: 2010Q2

REPORT INFORMATION
  Report Type: 
  Country: None (occurrence: None)
  Receive Date: 20100616
  Receipt Date: 20100607
  Transmission Date: 20101027
  Serious: Yes (Other)
  Sender: FDA-Public Use
  Company Number: US-ROCHE-698681

PATIENT
  Age: 48 Year
  Sex: Female

DRUGS (1)
  1. PEGASYS [Suspect]
     Dosage: FORM: PRE-FILLED SYRINGE, 30 UG FILLED FROM 180 UG VIAL
     Route: 065
     Dates: start: 20080401

REACTIONS (1)
  - CATARACT [None]
